FAERS Safety Report 9257074 (Version 2)
Quarter: 2013Q2

REPORT INFORMATION
  Report Type: Spontaneous
  Country: JP (occurrence: None)
  Receive Date: 20130423
  Receipt Date: 20130522
  Transmission Date: 20140414
  Serious: No
  Sender: FDA-Public Use
  Company Number: SPI201300238

PATIENT
  Age: 23 Year
  Sex: Male

DRUGS (1)
  1. AMITIZA [Suspect]
     Indication: CONSTIPATION
     Dosage: 24 MCG, BID, ORAL
     Route: 048
     Dates: start: 20130327, end: 20130327

REACTIONS (3)
  - Choking sensation [None]
  - Chest discomfort [None]
  - Dyspnoea [None]
